FAERS Safety Report 24320034 (Version 3)
Quarter: 2025Q3

REPORT INFORMATION
  Report Type: Report from Study
  Country: ZA (occurrence: ZA)
  Receive Date: 20240914
  Receipt Date: 20250809
  Transmission Date: 20251021
  Serious: Yes (Hospitalization, Other)
  Sender: ALEXION PHARMACEUTICALS
  Company Number: 2024A205425

PATIENT
  Age: 64 Year
  Sex: Female

DRUGS (7)
  1. BUDESONIDE\FORMOTEROL [Suspect]
     Active Substance: BUDESONIDE\FORMOTEROL
     Indication: Asthma
  2. AMLODIPINE BESYLATE\INDAPAMIDE\PERINDOPRIL ARGININE [Concomitant]
     Active Substance: AMLODIPINE BESYLATE\INDAPAMIDE\PERINDOPRIL ARGININE
     Indication: Hypertension
  3. ADCO DOL [Concomitant]
  4. MYPAID FORTE [Concomitant]
     Active Substance: ACETAMINOPHEN\IBUPROFEN
  5. FLUOXETINE ZYDUS [Concomitant]
  6. LIPOGEN [Concomitant]
     Indication: Blood cholesterol
  7. CLOBAZAM [Concomitant]
     Active Substance: CLOBAZAM
     Indication: Anxiety

REACTIONS (3)
  - Hand fracture [Unknown]
  - Syncope [Unknown]
  - Fall [Unknown]
